FAERS Safety Report 17663554 (Version 3)
Quarter: 2025Q3

REPORT INFORMATION
  Report Type: Report from Study
  Country: EU (occurrence: EU)
  Receive Date: 20200413
  Receipt Date: 20250705
  Transmission Date: 20251021
  Serious: Yes (Hospitalization, Other)
  Sender: AUROBINDO
  Company Number: EU-009507513-2003ITA008726

PATIENT
  Sex: Male

DRUGS (4)
  1. RIBAVIRIN [Suspect]
     Active Substance: RIBAVIRIN
     Indication: Nephropathy
     Route: 065
  2. RIBAVIRIN [Suspect]
     Active Substance: RIBAVIRIN
     Indication: Hepatitis C
     Dosage: 200 MILLIGRAM, 3 TIMES A DAY EVERY WEEK  (600 MG, EVERY WEK)
     Route: 065
  3. RIBAVIRIN [Suspect]
     Active Substance: RIBAVIRIN
     Indication: Hepatic cirrhosis
     Dosage: 400 MILLIGRAM, EVERY WEEK
     Route: 048
  4. RIBAVIRIN [Suspect]
     Active Substance: RIBAVIRIN
     Indication: Glomerulonephritis

REACTIONS (1)
  - Haemolytic anaemia [Recovering/Resolving]
